FAERS Safety Report 5087276-5 (Version None)
Quarter: 2006Q3

REPORT INFORMATION
  Report Type: 
  Country: None (occurrence: None)
  Receive Date: 20060801
  Receipt Date: 20051111
  Transmission Date: 20061208
  Serious: Yes (Hospitalization)
  Sender: FDA-Public Use
  Company Number: OMPQ-PR-0511S-1452

PATIENT
  Age: 62 Year
  Sex: Male

DRUGS (1)
  1. OMNIPAQUE 140 [Suspect]
     Indication: HAEMATURIA
     Dosage: 100 ML, SINGLE DOSE, I.V.
     Route: 042
     Dates: start: 20051111, end: 20051111

REACTIONS (3)
  - ANAPHYLACTOID REACTION [None]
  - CONFUSIONAL STATE [None]
  - HEADACHE [None]
